FAERS Safety Report 5472734-1 (Version None)
Quarter: 2007Q4

REPORT INFORMATION
  Report Type: 
  Country: None (occurrence: None)
  Receive Date: 20071001
  Receipt Date: 20061018
  Transmission Date: 20080405
  Serious: No
  Sender: FDA-Public Use
  Company Number: US-ASTRAZENECA-2006UW20097

PATIENT
  Age: 79 Year
  Sex: Female
  Weight: 79.4 kg

DRUGS (2)
  1. ARIMIDEX [Suspect]
     Indication: BREAST CANCER
     Route: 048
     Dates: start: 20040101
  2. NORVASC [Concomitant]

REACTIONS (2)
  - ARTHRITIS [None]
  - PARAESTHESIA [None]
